FAERS Safety Report 9850725 (Version 1)
Quarter: 2013Q4

REPORT INFORMATION
  Report Type: Spontaneous
  Country: US (occurrence: None)
  Receive Date: 20131226
  Receipt Date: 20131226
  Transmission Date: 20140711
  Serious: Yes (Other)
  Sender: FDA-Public Use
  Company Number: PHEH2012US012914

PATIENT
  Age: 55 Year
  Sex: Female

DRUGS (2)
  1. AFINITOR (RAD) UNKNOWN [Suspect]
     Route: 048
     Dates: start: 201110, end: 201206
  2. ZOFRAN (ONDANSETRON HYDROCHLORIDE) [Concomitant]

REACTIONS (8)
  - Neoplasm [None]
  - Feeling abnormal [None]
  - Pain [None]
  - Nausea [None]
  - Dehydration [None]
  - Vomiting [None]
  - Weight decreased [None]
  - Malignant neoplasm progression [None]
